FAERS Safety Report 7274392-2 (Version None)
Quarter: 2011Q1

REPORT INFORMATION
  Report Type: 
  Country: None (occurrence: None)
  Receive Date: 20110204
  Receipt Date: 20110124
  Transmission Date: 20110831
  Serious: Yes (Hospitalization, Other)
  Sender: FDA-Public Use
  Company Number: US-JNJFOC-20101209012

PATIENT
  Age: 20 Year
  Sex: Female
  Weight: 60 kg

DRUGS (19)
  1. VINBLASTINE [Suspect]
     Indication: NON-HODGKIN'S LYMPHOMA
     Dosage: PREGNANCY CATEGORY D ON HOSPITAL DAY 20, 34, 54, 68 AND 80
     Route: 065
  2. PROPOFOL [Suspect]
     Dosage: CONTINUOUS INTRAVENOUS INFUSION
     Route: 042
  3. ENOXAPARIN [Concomitant]
     Indication: ANTICOAGULANT THERAPY
     Dosage: PREGNANCY CATEGRORY B
     Route: 065
  4. CYCLOPHOSPHAMIDE [Suspect]
     Indication: NON-HODGKIN'S LYMPHOMA
     Dosage: PREGNANCY CATEGORY D ON HOSPITAL DAY 7
     Route: 065
  5. PROPOFOL [Suspect]
     Indication: SEDATION
     Dosage: CONTINUOUS INTRAVENOUS INFUSION, PREGNANCY CATEGORY B
     Route: 042
  6. DACARBAZINE [Suspect]
     Indication: NON-HODGKIN'S LYMPHOMA
     Dosage: PREGNANCY CATEGORY C ON HOSPITAL DAY 20, 34, 54, 68 AND 80
     Route: 065
  7. PROPOFOL [Suspect]
     Dosage: CONTINUOUS INTRAVENOUS INFUSION, DISCONTINUED ON HOSPITAL DAY 60
     Route: 042
  8. PIPERACILLIN AND TAZOBACTAM [Concomitant]
     Indication: PNEUMONIA STAPHYLOCOCCAL
     Dosage: PREGNANCY CATEGORY B, FOR 45 DAYS
     Route: 065
  9. FENTANYL [Suspect]
     Indication: ANALGESIC THERAPY
     Dosage: CONTINUOUS INTRAVENOUS INFUSION
     Route: 042
  10. FENTANYL [Suspect]
     Dosage: CONTINUOUS INTRAVENOUS INFUSION
     Route: 042
  11. PROPOFOL [Suspect]
     Dosage: CONTINUOUS INTRAVENOUS INFUSION
     Route: 042
  12. DOXIL [Suspect]
     Indication: NON-HODGKIN'S LYMPHOMA
     Dosage: PREGNANCY CATEGORY D ON HOSPITAL DAY 7, 20, 34, 54, 68 AND 80
     Route: 042
  13. FENTANYL [Suspect]
     Dosage: CONTINUOUS INTRAVENOUS INFUSION, DISCONTINUED ON HOSPITAL DAY 60
     Route: 042
  14. PROPOFOL [Suspect]
     Dosage: CONTINUOUS INFUSION, HOSPITAL DAY 25
     Route: 042
  15. PIPERACILLIN AND TAZOBACTAM [Concomitant]
     Indication: PNEUMONIA KLEBSIELLA
     Dosage: PREGNANCY CATEGORY B, FOR 45 DAYS
     Route: 065
  16. LINEZOLID [Concomitant]
     Indication: PNEUMONIA STAPHYLOCOCCAL
     Dosage: PREGNANCY CATEGORY C, FOR 17 DAYS
     Route: 065
  17. VINCRISTINE [Suspect]
     Indication: NON-HODGKIN'S LYMPHOMA
     Dosage: PREGNANCY CATEGORY D ON HOSPITAL DAY 7
     Route: 065
  18. LINEZOLID [Concomitant]
     Indication: PNEUMONIA KLEBSIELLA
     Dosage: PREGNANCY CATEGORY C, FOR 17 DAYS
     Route: 065
  19. FENTANYL [Suspect]
     Dosage: CONTINUOUS INTRAVENOUS INFUSION, PREGNANCY CATEGORY C
     Route: 042

REACTIONS (5)
  - ABORTION INDUCED [None]
  - PNEUMONIA STAPHYLOCOCCAL [None]
  - CANDIDIASIS [None]
  - DRUG EXPOSURE DURING PREGNANCY [None]
  - PNEUMONIA KLEBSIELLA [None]
